FAERS Safety Report 23781961 (Version 1)
Quarter: 2024Q2

REPORT INFORMATION
  Report Type: Spontaneous
  Country: US (occurrence: US)
  Receive Date: 20240425
  Receipt Date: 20240425
  Transmission Date: 20240716
  Serious: No
  Sender: FDA-Public Use
  Company Number: US-TEVA-VS-3181865

PATIENT
  Age: 70 Year
  Sex: Female

DRUGS (2)
  1. AUSTEDO XR [Suspect]
     Active Substance: DEUTETRABENAZINE
     Indication: Huntington^s disease
     Route: 065
  2. AUSTEDO [Interacting]
     Active Substance: DEUTETRABENAZINE
     Indication: Product used for unknown indication
     Route: 065

REACTIONS (3)
  - Anxiety [Unknown]
  - Incontinence [Unknown]
  - Aphonia [Not Recovered/Not Resolved]
